FAERS Safety Report 6178899-0 (Version None)
Quarter: 2009Q2

REPORT INFORMATION
  Report Type: 
  Country: None (occurrence: None)
  Receive Date: 20090505
  Receipt Date: 20090407
  Transmission Date: 20091009
  Serious: Yes (Other)
  Sender: FDA-Public Use
  Company Number: BR-PFIZER INC-2009194962

PATIENT

DRUGS (7)
  1. EPELIN [Suspect]
     Indication: OXYGEN SATURATION ABNORMAL
     Dosage: 50 MG, 1X/DAY
  2. HIDANTAL [Suspect]
     Dosage: UNK
  3. MICARDIS [Concomitant]
     Indication: HYPERTENSION
     Dosage: UNK
  4. ANCORON [Concomitant]
     Indication: ARRHYTHMIA
     Dosage: UNK
  5. LEXOTAN [Concomitant]
     Dosage: UNK
  6. DAFLON [Concomitant]
     Dosage: UNK
  7. VERTIZINE D [Concomitant]
     Indication: NERVOUS SYSTEM DISORDER
     Dosage: UNK

REACTIONS (4)
  - BLOOD PRESSURE INCREASED [None]
  - DIZZINESS [None]
  - PRURITUS [None]
  - TINNITUS [None]
